FAERS Safety Report 7294179-4 (Version None)
Quarter: 2011Q1

REPORT INFORMATION
  Report Type: 
  Country: None (occurrence: None)
  Receive Date: 20110215
  Receipt Date: 20110124
  Transmission Date: 20110831
  Serious: No
  Sender: FDA-Public Use
  Company Number: US-B.I. PHARMACEUTICALS,INC./RIDGEFIELD-2011-BP-02565BP

PATIENT
  Sex: Female

DRUGS (5)
  1. OXYCODONE [Concomitant]
     Indication: BACK PAIN
  2. SPIRIVA [Suspect]
     Indication: CHRONIC OBSTRUCTIVE PULMONARY DISEASE
     Dosage: 18 MCG
     Route: 055
     Dates: start: 20040101
  3. NASONEX [Concomitant]
     Indication: HYPERSENSITIVITY
  4. DURAGESIC-50 [Concomitant]
     Indication: BACK PAIN
  5. ADVAIR [Concomitant]
     Indication: CHRONIC OBSTRUCTIVE PULMONARY DISEASE

REACTIONS (1)
  - PNEUMONIA [None]
